FAERS Safety Report 5141188-7 (Version None)
Quarter: 2006Q4

REPORT INFORMATION
  Report Type: 
  Country: None (occurrence: None)
  Receive Date: 20061026
  Receipt Date: 20061012
  Transmission Date: 20070319
  Serious: Yes (Death)
  Sender: FDA-Public Use
  Company Number: S06-FRA-03987-01

PATIENT
  Age: 41 Year
  Sex: Male
  Weight: 65 kg

DRUGS (2)
  1. SEROPLEX (ESCITALOPRAM) [Suspect]
     Indication: MAJOR DEPRESSION
     Dosage: 10 MG QD PO
     Route: 048
     Dates: start: 20060913, end: 20060918
  2. PRAZEPAM [Suspect]
     Indication: MAJOR DEPRESSION
     Dosage: 40 MG QD PO
     Route: 048
     Dates: start: 20060913, end: 20060918

REACTIONS (7)
  - COMPLETED SUICIDE [None]
  - DELIRIUM [None]
  - EUPHORIC MOOD [None]
  - GUN SHOT WOUND [None]
  - HOMICIDE [None]
  - MAJOR DEPRESSION [None]
  - MARITAL PROBLEM [None]
